FAERS Safety Report 7525843-7 (Version None)
Quarter: 2011Q2

REPORT INFORMATION
  Report Type: 
  Country: None (occurrence: None)
  Receive Date: 20110606
  Receipt Date: 20110519
  Transmission Date: 20111010
  Serious: Yes (Hospitalization)
  Sender: FDA-Public Use
  Company Number: A0810793A

PATIENT
  Age: 58 Year
  Sex: Male
  Weight: 88.6 kg

DRUGS (6)
  1. METFORMIN HCL [Concomitant]
  2. LIPITOR [Concomitant]
  3. ALTACE [Concomitant]
  4. AVANDAMET [Suspect]
     Indication: DIABETES MELLITUS
     Route: 048
     Dates: end: 20070522
  5. AVANDIA [Suspect]
     Dosage: 8MG TWICE PER DAY
     Route: 048
     Dates: start: 19991226, end: 20070501
  6. PROSCAR [Concomitant]

REACTIONS (1)
  - MYOCARDIAL INFARCTION [None]
